FAERS Safety Report 25113664 (Version 1)
Quarter: 2025Q1

REPORT INFORMATION
  Report Type: Spontaneous
  Country: US (occurrence: None)
  Receive Date: 20250322
  Receipt Date: 20250322
  Transmission Date: 20250409
  Serious: Yes (Other)
  Sender: FDA-CTU
  Company Number: None

PATIENT
  Age: 79 Year
  Sex: Male
  Weight: 67.5 kg

DRUGS (7)
  1. CLOPIDOGREL [Suspect]
     Active Substance: CLOPIDOGREL BISULFATE
     Indication: Coronary arterial stent insertion
     Dosage: 1 TABLET DAILY
     Dates: start: 20231210, end: 20240510
  2. NEBIVOLOL [Concomitant]
     Active Substance: NEBIVOLOL
  3. Toresamide [Concomitant]
  4. ASPIRIN [Concomitant]
     Active Substance: ASPIRIN
  5. LIPITOR [Concomitant]
     Active Substance: ATORVASTATIN CALCIUM
  6. UBIQUINOL [Concomitant]
     Active Substance: UBIQUINOL
  7. TAURINE [Concomitant]
     Active Substance: TAURINE

REACTIONS (5)
  - Ageusia [None]
  - Hallucination [None]
  - Sleep terror [None]
  - Thrombocytopenia [None]
  - Blood iron decreased [None]

NARRATIVE: CASE EVENT DATE: 20240501
